FAERS Safety Report 6201697-6 (Version None)
Quarter: 2009Q2

REPORT INFORMATION
  Report Type: 
  Country: None (occurrence: None)
  Receive Date: 20090526
  Receipt Date: 20090515
  Transmission Date: 20091009
  Serious: Yes (Other)
  Sender: FDA-Public Use
  Company Number: US-BAYER-200920989NA

PATIENT
  Age: 40 Year
  Sex: Female

DRUGS (1)
  1. MIRENA [Suspect]
     Indication: CONTRACEPTION
     Dosage: CONTINUOUS
     Route: 015
     Dates: start: 20080401, end: 20090514

REACTIONS (6)
  - ARTHRALGIA [None]
  - BACK PAIN [None]
  - BLINDNESS TRANSIENT [None]
  - HEADACHE [None]
  - MYALGIA [None]
  - SYNCOPE [None]
